FAERS Safety Report 8456282-2 (Version None)
Quarter: 2012Q2

REPORT INFORMATION
  Report Type: 
  Country: None (occurrence: None)
  Receive Date: 20120621
  Receipt Date: 20120612
  Transmission Date: 20120825
  Serious: Yes (Hospitalization)
  Sender: FDA-Public Use
  Company Number: US-ROCHE-1075553

PATIENT
  Sex: Female
  Weight: 87 kg

DRUGS (16)
  1. MORPHINE [Concomitant]
     Route: 048
  2. SIMVASTATIN [Concomitant]
     Route: 048
  3. PROCHLORPERAZINE [Concomitant]
     Route: 048
  4. LISINOPRIL [Concomitant]
     Indication: BLOOD PRESSURE
  5. XELODA [Suspect]
     Indication: BREAST CANCER
     Route: 048
     Dates: start: 20120309, end: 20120420
  6. COLACE [Concomitant]
     Indication: CONSTIPATION
     Route: 048
  7. MAGNESIUM HYDROXIDE TAB [Concomitant]
     Route: 048
  8. SENOKOT [Concomitant]
     Indication: CONSTIPATION
     Route: 048
  9. GLIPIZIDE [Concomitant]
     Route: 048
  10. METFORMIN HCL [Concomitant]
     Route: 048
  11. ZOMETA [Concomitant]
     Indication: METASTASES TO BONE
  12. LOSARTAN POTASSIUM [Concomitant]
     Indication: BLOOD PRESSURE
  13. IXABEPILONE [Concomitant]
     Dates: start: 20120517
  14. OXYCODONE HCL [Concomitant]
     Route: 048
  15. LOSARTAN POTASSIUM [Concomitant]
     Route: 048
  16. ZOFRAN [Concomitant]
     Route: 048

REACTIONS (2)
  - DISEASE PROGRESSION [None]
  - DRUG INEFFECTIVE [None]
